FAERS Safety Report 16992163 (Version 1)
Quarter: 2019Q4

REPORT INFORMATION
  Report Type: Report from Study
  Country: None (occurrence: BE)
  Receive Date: 20191105
  Receipt Date: 20191105
  Transmission Date: 20200122
  Serious: Yes (Hospitalization)
  Sender: FDA-Public Use
  Company Number: BE-ABBVIE-19K-013-2977476-00

PATIENT
  Sex: Male
  Weight: 70 kg

DRUGS (6)
  1. DUODOPA [Suspect]
     Active Substance: CARBIDOPA\LEVODOPA
     Dosage: MD=8ML, CD=3.8ML/HR DURING 16HRS, ED=1.5ML
     Route: 050
     Dates: start: 20190114
  2. PROLOPA [Concomitant]
     Active Substance: BENSERAZIDE\LEVODOPA
     Indication: PARKINSON^S DISEASE
     Dosage: FORM STRENGTH: 200MG/50MG
     Route: 048
  3. DUODOPA [Suspect]
     Active Substance: CARBIDOPA\LEVODOPA
     Dosage: DOSES CONTINUOUSLY MONITORED AND ADAPTED
     Route: 050
     Dates: start: 20181206, end: 20190114
  4. SERLAIN [Concomitant]
     Active Substance: SERTRALINE HYDROCHLORIDE
     Indication: PRODUCT USED FOR UNKNOWN INDICATION
  5. PROLOPA [Concomitant]
     Active Substance: BENSERAZIDE\LEVODOPA
     Dosage: FORM STRENGTH: 200MG/50MG; RESCUE MEDICATION
  6. DUODOPA [Suspect]
     Active Substance: CARBIDOPA\LEVODOPA
     Indication: PARKINSON^S DISEASE
     Dosage: MD=7ML, CD=3ML/HR DURING 16HRS, ED=1.5ML
     Route: 050
     Dates: start: 20181205, end: 20181206

REACTIONS (2)
  - Depression [Unknown]
  - Epilepsy [Unknown]
